FAERS Safety Report 7551612-8 (Version None)
Quarter: 2011Q2

REPORT INFORMATION
  Report Type: 
  Country: None (occurrence: None)
  Receive Date: 20110616
  Receipt Date: 20110609
  Transmission Date: 20111010
  Serious: Yes (Other)
  Sender: FDA-Public Use
  Company Number: US-JNJFOC-20100806857

PATIENT
  Sex: Male
  Weight: 99.34 kg

DRUGS (1)
  1. LEVAQUIN [Suspect]
     Indication: URINARY TRACT INFECTION
     Route: 048
     Dates: start: 20080101, end: 20080301

REACTIONS (4)
  - TENDON RUPTURE [None]
  - HERNIA [None]
  - ARTHROPATHY [None]
  - TENDON INJURY [None]
